FAERS Safety Report 5053226-0 (Version None)
Quarter: 2006Q3

REPORT INFORMATION
  Report Type: 
  Country: None (occurrence: None)
  Receive Date: 20060712
  Receipt Date: 20060627
  Transmission Date: 20061208
  Serious: Yes (Death, Life-Threatening, Hospitalization, Other)
  Sender: FDA-Public Use
  Company Number: 163-21880-06040809

PATIENT
  Age: 71 Year
  Sex: Female

DRUGS (12)
  1. REVLIMID [Suspect]
     Indication: MYELODYSPLASTIC SYNDROME
     Dosage: 5 MG, QD, ORAL
     Route: 048
     Dates: start: 20060301, end: 20060419
  2. THALOMID [Suspect]
     Indication: MYELODYSPLASTIC SYNDROME
     Dosage: 100 MG, QHS, ORAL
     Route: 048
     Dates: start: 20060428, end: 20060501
  3. THALOMID [Suspect]
     Indication: MYELODYSPLASTIC SYNDROME
     Dosage: 100 MG, QHS, ORAL
     Route: 048
     Dates: start: 20040520
  4. DILAUDID [Suspect]
     Indication: BACK PAIN
     Dosage: 2 MG, Q 4HRS PRN, INTRAVENOUS
     Route: 042
  5. VIDAZA [Suspect]
     Indication: DRUG USE FOR UNKNOWN INDICATION
     Dates: start: 20050101, end: 20050101
  6. NEXIUM [Concomitant]
  7. ZOCOR [Concomitant]
  8. PAXIL [Concomitant]
  9. ZESTRIL [Concomitant]
  10. EPOGEN [Concomitant]
  11. NEUPOGEN [Concomitant]
  12. PROCRIT [Concomitant]

REACTIONS (17)
  - ACUTE MYOCARDIAL INFARCTION [None]
  - BONE MARROW FAILURE [None]
  - CARDIAC FAILURE CONGESTIVE [None]
  - CEREBRAL HAEMORRHAGE [None]
  - DISEASE PROGRESSION [None]
  - DIZZINESS [None]
  - GASTRITIS [None]
  - GASTROINTESTINAL HAEMORRHAGE [None]
  - HAEMORRHOIDS [None]
  - HYPERGLYCAEMIA [None]
  - HYPERHIDROSIS [None]
  - MENINGORRHAGIA [None]
  - MYELODYSPLASTIC SYNDROME [None]
  - PANCYTOPENIA [None]
  - RENAL FAILURE ACUTE [None]
  - SEPSIS [None]
  - TRANSIENT ISCHAEMIC ATTACK [None]
